FAERS Safety Report 16042500 (Version 1)
Quarter: 2019Q2

REPORT INFORMATION
  Report Type: Spontaneous
  Country: US (occurrence: US)
  Receive Date: 20190306
  Receipt Date: 20190306
  Transmission Date: 20190711
  Serious: Yes (Other)
  Sender: FDA-Public Use
  Company Number: None

PATIENT
  Age: 76 Year
  Sex: Female

DRUGS (4)
  1. DEXILANT [Concomitant]
     Active Substance: DEXLANSOPRAZOLE
  2. AZELASTINE HCL [Concomitant]
     Active Substance: AZELASTINE HYDROCHLORIDE
  3. OLOPATADINE. [Suspect]
     Active Substance: OLOPATADINE
     Indication: NASAL DISORDER
     Route: 045
     Dates: start: 20190306, end: 20190306
  4. PENLAC [Concomitant]
     Active Substance: CICLOPIROX

REACTIONS (2)
  - Throat irritation [None]
  - Oesophageal pain [None]

NARRATIVE: CASE EVENT DATE: 20190306
